FAERS Safety Report 7334157-X (Version None)
Quarter: 2011Q1

REPORT INFORMATION
  Report Type: 
  Country: None (occurrence: None)
  Receive Date: 20110307
  Receipt Date: 20100909
  Transmission Date: 20110831
  Serious: Yes (Hospitalization, Other)
  Sender: FDA-Public Use
  Company Number: US-BAYER-201014018NA

PATIENT
  Sex: Female
  Weight: 139.68 kg

DRUGS (8)
  1. HYDROCODONE BITARTRATE [Concomitant]
  2. UNCODEABLE ^UNCLASSIFIABLE^ [Concomitant]
  3. YAZ [Suspect]
     Indication: MENSTRUATION IRREGULAR
     Dosage: UNK
     Dates: start: 20070401, end: 20080801
  4. YASMIN [Suspect]
     Indication: PRODUCT USED FOR UNKNOWN INDICATION
     Dosage: AS USED DOSE: UNK
     Route: 048
     Dates: start: 20070401
  5. UNCODEABLE ^UNCLASSIFIABLE^ [Concomitant]
  6. TRILYTE [Concomitant]
  7. UNCODEABLE ^UNCLASSIFIABLE^ [Concomitant]
     Indication: VAGINITIS BACTERIAL
     Dosage: UNK
     Dates: start: 20080401
  8. ANTIBIOTICS [Concomitant]
     Dosage: UNK
     Dates: start: 20080101

REACTIONS (7)
  - CHOLELITHIASIS [None]
  - CHEST PAIN [None]
  - GALLBLADDER CHOLESTEROLOSIS [None]
  - CHOLECYSTITIS CHRONIC [None]
  - PULMONARY EMBOLISM [None]
  - HYPOXIA [None]
  - PAIN IN EXTREMITY [None]
